FAERS Safety Report 8832335 (Version 2)
Quarter: 2012Q4

REPORT INFORMATION
  Report Type: 
  Country: US (occurrence: US)
  Receive Date: 20121009
  Receipt Date: 20121204
  Transmission Date: 20130627
  Serious: No
  Sender: FDA-Public Use
  Company Number: US-ASTRAZENECA-2012SE75837

PATIENT
  Age: 73 Year
  Sex: Female
  Weight: 108.9 kg

DRUGS (7)
  1. SYMBICORT [Suspect]
     Indication: SARCOIDOSIS
     Dosage: 160/4.5 1 PUFF BID
     Route: 055
  2. LASIX [Concomitant]
     Indication: CARDIAC FAILURE CONGESTIVE
  3. COREG CR [Concomitant]
     Indication: CARDIAC DISORDER
  4. SYNTHROID [Concomitant]
     Indication: HYPOTHYROIDISM
  5. LESCOLXL [Concomitant]
     Indication: BLOOD CHOLESTEROL ABNORMAL
  6. DIOVAN [Concomitant]
     Indication: CARDIAC ASSISTANCE DEVICE USER
  7. BABY ASPIRIN [Concomitant]
     Indication: CARDIAC DISORDER

REACTIONS (4)
  - Dysphonia [Unknown]
  - Drug dose omission [Unknown]
  - Off label use [Unknown]
  - Off label use [Unknown]
